FAERS Safety Report 22081767 (Version 1)
Quarter: 2023Q1

REPORT INFORMATION
  Report Type: Other
  Country: BE (occurrence: BE)
  Receive Date: 20230310
  Receipt Date: 20230310
  Transmission Date: 20230418
  Serious: Yes (Other)
  Sender: FDA-Public Use
  Company Number: BE-BRISTOL-MYERS SQUIBB COMPANY-2023-002670

PATIENT

DRUGS (8)
  1. DEXAMETHASONE [Suspect]
     Active Substance: DEXAMETHASONE
     Indication: Chronic leukaemia
     Dosage: UNK (CYCLICAL)
     Route: 065
  2. DEXAMETHASONE [Suspect]
     Active Substance: DEXAMETHASONE
     Indication: Plasma cell myeloma
  3. BORTEZOMIB [Suspect]
     Active Substance: BORTEZOMIB
     Indication: Plasma cell myeloma
     Dosage: UNK (CYCLICAL)
     Route: 065
  4. BORTEZOMIB [Suspect]
     Active Substance: BORTEZOMIB
     Indication: Chronic leukaemia
  5. LENALIDOMIDE [Suspect]
     Active Substance: LENALIDOMIDE
     Indication: Plasma cell myeloma
     Dosage: 5 MILLIGRAM, LOW DOSE
     Route: 065
  6. LENALIDOMIDE [Suspect]
     Active Substance: LENALIDOMIDE
     Indication: Chronic leukaemia
  7. HYDROXYUREA [Suspect]
     Active Substance: HYDROXYUREA
     Indication: Plasma cell myeloma
     Dosage: UNK (CYCLICAL)
     Route: 065
  8. HYDROXYUREA [Suspect]
     Active Substance: HYDROXYUREA
     Indication: Chronic leukaemia

REACTIONS (4)
  - Off label use [Unknown]
  - Nervous system disorder [Unknown]
  - Cytopenia [Unknown]
  - Nephrotic syndrome [Unknown]
